FAERS Safety Report 10955573 (Version 1)
Quarter: 2015Q1

REPORT INFORMATION
  Report Type: Report from Study
  Country: ZA (occurrence: ZA)
  Receive Date: 20150326
  Receipt Date: 20150326
  Transmission Date: 20150721
  Serious: Yes (Other)
  Sender: FDA-Public Use
  Company Number: ZA-BAYER-2015-043052

PATIENT
  Age: 43 Year
  Sex: Female

DRUGS (1)
  1. BETAFERON [Suspect]
     Active Substance: INTERFERON BETA-1B
     Indication: RELAPSING-REMITTING MULTIPLE SCLEROSIS
     Dosage: 8 MIU, QOD
     Route: 058

REACTIONS (7)
  - Multiple sclerosis relapse [None]
  - Hyperhidrosis [None]
  - Insomnia [None]
  - Fatigue [None]
  - Injection site erythema [None]
  - Injection site swelling [None]
  - Injection site pain [None]

NARRATIVE: CASE EVENT DATE: 201502
